FAERS Safety Report 23244913 (Version 1)
Quarter: 2023Q4

REPORT INFORMATION
  Report Type: Spontaneous
  Country: NL (occurrence: NL)
  Receive Date: 20231130
  Receipt Date: 20231130
  Transmission Date: 20240109
  Serious: Yes (Death, Other)
  Sender: FDA-Public Use
  Company Number: None

PATIENT
  Age: 78 Year
  Sex: Male
  Weight: 73 kg

DRUGS (3)
  1. METAMIZOLE SODIUM [Suspect]
     Active Substance: METAMIZOLE SODIUM
     Indication: Cancer pain
     Dosage: 1000 MG, TID (2 TABLET THRICE A DAY)
     Route: 065
     Dates: start: 20230202, end: 20230329
  2. DOCETAXEL [Suspect]
     Active Substance: DOCETAXEL\DOCETAXEL ANHYDROUS
     Indication: Prostate cancer metastatic
     Dosage: 102 MG 1 X EVERY 3 WEEKS
     Route: 065
     Dates: start: 20230315, end: 20230315
  3. PIPERACILLIN SODIUM\TAZOBACTAM SODIUM [Concomitant]
     Active Substance: PIPERACILLIN SODIUM\TAZOBACTAM SODIUM
     Indication: Product used for unknown indication
     Dosage: 4,500 MG 1 UNIT 4 X PER DAY
     Route: 065

REACTIONS (2)
  - Neutropenic colitis [Fatal]
  - Febrile neutropenia [Fatal]
